FAERS Safety Report 19218556 (Version 1)
Quarter: 2021Q2

REPORT INFORMATION
  Report Type: Spontaneous
  Country: TR (occurrence: TR)
  Receive Date: 20210505
  Receipt Date: 20210505
  Transmission Date: 20210717
  Serious: Yes (Death, Other)
  Sender: FDA-Public Use
  Company Number: TR-SA-2021SA135183

PATIENT
  Age: 30 Day
  Sex: Male

DRUGS (4)
  1. INSULIN GLARGINE [Suspect]
     Active Substance: INSULIN GLARGINE
     Dosage: 10 IU/KG
     Route: 058
  2. INSULIN GLARGINE [Suspect]
     Active Substance: INSULIN GLARGINE
     Indication: HYPERGLYCAEMIA
     Dosage: 420 U, QD
  3. POTASSIUM [Concomitant]
     Active Substance: POTASSIUM
     Indication: HYPERGLYCAEMIA
     Dosage: 1 MEQ/KG/DAY
  4. NACL [Concomitant]
     Active Substance: SODIUM CHLORIDE
     Indication: HYPERGLYCAEMIA
     Dosage: 20 ML/KG
     Route: 040

REACTIONS (3)
  - Diabetic hyperosmolar coma [Fatal]
  - Hyperglycaemia [Fatal]
  - Drug ineffective [Fatal]
